FAERS Safety Report 9949997 (Version 1)
Quarter: 2014Q1

REPORT INFORMATION
  Report Type: Report from Study
  Country: US (occurrence: US)
  Receive Date: 20140304
  Receipt Date: 20140304
  Transmission Date: 20141002
  Serious: No
  Sender: FDA-Public Use
  Company Number: US-ABBVIE-13P-163-1065489-00

PATIENT
  Age: 17 Year
  Sex: Female
  Weight: 48.58 kg

DRUGS (2)
  1. HUMIRA [Suspect]
     Indication: PUSTULAR PSORIASIS
     Dates: start: 201207
  2. DEPO PROVERA [Concomitant]
     Indication: CONTRACEPTION

REACTIONS (1)
  - Off label use [Not Recovered/Not Resolved]
